FAERS Safety Report 13906311 (Version 1)
Quarter: 2017Q3

REPORT INFORMATION
  Report Type: Spontaneous
  Country: US (occurrence: None)
  Receive Date: 20170822
  Receipt Date: 20170822
  Transmission Date: 20171127
  Serious: No
  Sender: FDA-Public Use
  Company Number: None

PATIENT
  Age: 70 Year
  Sex: Male

DRUGS (19)
  1. METOCLOPRAM [Concomitant]
     Active Substance: METOCLOPRAMIDE
  2. ALLOPURINOL. [Concomitant]
     Active Substance: ALLOPURINOL
  3. ACYCLOVIR. [Concomitant]
     Active Substance: ACYCLOVIR
  4. METOPROLOL. [Concomitant]
     Active Substance: METOPROLOL
  5. SENNA LAXATIVE [Concomitant]
     Active Substance: SENNOSIDES
  6. GENERLAC [Concomitant]
     Active Substance: LACTULOSE
  7. REVLIMID [Concomitant]
     Active Substance: LENALIDOMIDE
  8. FAMOTIDINE. [Concomitant]
     Active Substance: FAMOTIDINE
  9. OXYCONTIN [Concomitant]
     Active Substance: OXYCODONE HYDROCHLORIDE
  10. OXYCODONE [Concomitant]
     Active Substance: OXYCODONE
  11. FUROSEMIDE. [Concomitant]
     Active Substance: FUROSEMIDE
  12. LISINOPRIL. [Concomitant]
     Active Substance: LISINOPRIL
  13. LOVASTATIN. [Concomitant]
     Active Substance: LOVASTATIN
  14. POMALYST [Concomitant]
     Active Substance: POMALIDOMIDE
  15. AMOXICILLIN. [Concomitant]
     Active Substance: AMOXICILLIN
  16. VITAMIN D [Concomitant]
     Active Substance: CHOLECALCIFEROL
  17. TRAMADOL. [Concomitant]
     Active Substance: TRAMADOL
  18. NINLARO [Suspect]
     Active Substance: IXAZOMIB
     Route: 048
     Dates: start: 20170822
  19. LANTUS [Concomitant]
     Active Substance: INSULIN GLARGINE

REACTIONS (2)
  - Vomiting [None]
  - Nausea [None]

NARRATIVE: CASE EVENT DATE: 20170821
